FAERS Safety Report 9305729 (Version 1)
Quarter: 2013Q1

REPORT INFORMATION
  Report Type: Spontaneous
  Country: US (occurrence: None)
  Receive Date: 20130111
  Receipt Date: 20130111
  Transmission Date: 20140127
  Serious: Yes (Hospitalization)
  Sender: FDA-Public Use
  Company Number: 2012US000730

PATIENT
  Age: 44 Year
  Sex: Male
  Weight: 118.5 kg

DRUGS (1)
  1. PONATINIB (AP24534) TABLET [Suspect]
     Indication: CHRONIC MYELOID LEUKAEMIA
     Route: 048
     Dates: start: 20110331, end: 20120718

REACTIONS (12)
  - Chest pain [None]
  - Pancreatic enzymes increased [None]
  - Burning sensation [None]
  - Nausea [None]
  - Dizziness [None]
  - Blood glucose increased [None]
  - Blood creatinine increased [None]
  - Bradycardia [None]
  - Electrocardiogram ST-T change [None]
  - Blood alkaline phosphatase increased [None]
  - Alanine aminotransferase increased [None]
  - Aspartate aminotransferase increased [None]
